FAERS Safety Report 6213354-0 (Version None)
Quarter: 2009Q2

REPORT INFORMATION
  Report Type: 
  Country: None (occurrence: None)
  Receive Date: 20090601
  Receipt Date: 20090601
  Transmission Date: 20091009
  Serious: Yes (Other)
  Sender: FDA-Public Use
  Company Number: None

PATIENT
  Age: 64 Year
  Sex: Female
  Weight: 69.4003 kg

DRUGS (2)
  1. NASONEX [Suspect]
     Indication: SEASONAL ALLERGY
     Dosage: 2 SPRAYS IN EACH NOSTRIL ONCE DAILY NASAL
     Route: 045
     Dates: start: 20090514, end: 20090528
  2. NASONEX [Suspect]
     Indication: SINUSITIS
     Dosage: 2 SPRAYS IN EACH NOSTRIL ONCE DAILY NASAL
     Route: 045
     Dates: start: 20090514, end: 20090528

REACTIONS (4)
  - COUGH [None]
  - OROPHARYNGEAL PAIN [None]
  - PRODUCT ODOUR ABNORMAL [None]
  - PRODUCT SUBSTITUTION ISSUE [None]
